FAERS Safety Report 4491256-8 (Version None)
Quarter: 2004Q4

REPORT INFORMATION
  Report Type: 
  Country: None (occurrence: None)
  Receive Date: 20041027
  Receipt Date: 20041022
  Transmission Date: 20050328
  Serious: Yes (Hospitalization)
  Sender: FDA-Public Use
  Company Number: 200412916GDS

PATIENT
  Age: 31 Year
  Sex: Female

DRUGS (5)
  1. AFRIN [Suspect]
     Dosage: NASAL
     Route: 055
  2. SERTRALINE HCL [Suspect]
     Dosage: ORAL
     Route: 048
  3. PEPTOBISMOL [Concomitant]
  4. LANSOPRAZOLE [Concomitant]
  5. DOMPERIDONE [Concomitant]

REACTIONS (8)
  - CEREBROVASCULAR SPASM [None]
  - CSF PRESSURE INCREASED [None]
  - DRUG INTERACTION [None]
  - HEADACHE [None]
  - NAUSEA [None]
  - PHONOPHOBIA [None]
  - PHOTOPHOBIA [None]
  - VOMITING [None]
